FAERS Safety Report 13760822 (Version 4)
Quarter: 2019Q2

REPORT INFORMATION
  Report Type: Spontaneous
  Country: US (occurrence: US)
  Receive Date: 20170717
  Receipt Date: 20190609
  Transmission Date: 20190711
  Serious: No
  Sender: FDA-Public Use
  Company Number: US-ASTRAZENECA-2017SE71488

PATIENT
  Age: 3852 Week
  Sex: Female
  Weight: 47.6 kg

DRUGS (7)
  1. IRESSA [Suspect]
     Active Substance: GEFITINIB
     Indication: PLEURAL MESOTHELIOMA MALIGNANT
     Route: 048
  2. ATENOLOL. [Suspect]
     Active Substance: ATENOLOL
     Indication: HEART RATE DECREASED
     Dosage: AS REQUIRED
     Route: 048
  3. MARIJUANA [Concomitant]
     Active Substance: CANNABIS SATIVA SUBSP. INDICA TOP
     Indication: SLEEP DISORDER
     Dosage: AS REQUIRED
     Route: 048
  4. TRAZODONE [Concomitant]
     Active Substance: TRAZODONE HYDROCHLORIDE
     Indication: SLEEP DISORDER
     Dosage: 250.0MG AS REQUIRED
     Route: 048
  5. KERASAL [Concomitant]
     Active Substance: MENTHOL
     Indication: FUNGAL SKIN INFECTION
  6. IRESSA [Suspect]
     Active Substance: GEFITINIB
     Indication: PLEURAL MESOTHELIOMA MALIGNANT
     Route: 048
     Dates: start: 2017
  7. LEVOTHYROXINE. [Concomitant]
     Active Substance: LEVOTHYROXINE
     Indication: THYROIDITIS
     Dosage: DAILY
     Route: 048

REACTIONS (17)
  - Diarrhoea [Recovered/Resolved]
  - Hepatic enzyme increased [Recovered/Resolved]
  - Intentional product misuse [Unknown]
  - Haemorrhage [Unknown]
  - Dry skin [Unknown]
  - Memory impairment [Unknown]
  - Fatigue [Unknown]
  - Erythema [Not Recovered/Not Resolved]
  - Pruritus [Unknown]
  - Extra dose administered [Unknown]
  - Stress [Unknown]
  - Product use complaint [Unknown]
  - Off label use [Unknown]
  - Product dose omission [Unknown]
  - Skin disorder [Not Recovered/Not Resolved]
  - Rash [Recovered/Resolved]
  - Dizziness [Unknown]

NARRATIVE: CASE EVENT DATE: 20170705
